FAERS Safety Report 25775802 (Version 1)
Quarter: 2025Q3

REPORT INFORMATION
  Report Type: Spontaneous
  Country: AU (occurrence: AU)
  Receive Date: 20250909
  Receipt Date: 20250909
  Transmission Date: 20251020
  Serious: Yes (Other)
  Sender: BEIGENE
  Company Number: AU-BEIGENE-BGN-2025-014947

PATIENT

DRUGS (2)
  1. TISLELIZUMAB [Suspect]
     Active Substance: TISLELIZUMAB
     Indication: Product used for unknown indication
  2. TISLELIZUMAB [Suspect]
     Active Substance: TISLELIZUMAB

REACTIONS (1)
  - Intestinal obstruction [Unknown]
